FAERS Safety Report 11744405 (Version 1)
Quarter: 2015Q4

REPORT INFORMATION
  Report Type: Spontaneous
  Country: US (occurrence: US)
  Receive Date: 20151116
  Receipt Date: 20151116
  Transmission Date: 20160304
  Serious: No
  Sender: FDA-Public Use
  Company Number: US-EPIC PHARMA LLC-2015EPC00001

PATIENT
  Age: 73 Year
  Sex: Female
  Weight: 56.69 kg

DRUGS (8)
  1. BETAXOLOL TABLETS USP 10 MG [Suspect]
     Active Substance: BETAXOLOL HYDROCHLORIDE
     Indication: VENTRICULAR EXTRASYSTOLES
  2. KLONOPIN [Concomitant]
     Active Substance: CLONAZEPAM
     Dosage: UNK, AS NEEDED
  3. BETAXOLOL TABLETS USP 10 MG [Suspect]
     Active Substance: BETAXOLOL HYDROCHLORIDE
     Indication: PALPITATIONS
     Dosage: 5 MG, 1X/DAY
     Route: 048
     Dates: start: 20150205
  4. BETAXOLOL TABLETS USP 10 MG [Suspect]
     Active Substance: BETAXOLOL HYDROCHLORIDE
     Indication: ARRHYTHMIA
  5. LIPITOR [Concomitant]
     Active Substance: ATORVASTATIN CALCIUM
     Dosage: 10 MG, 1X/DAY
  6. XANAX [Concomitant]
     Active Substance: ALPRAZOLAM
  7. ASPIRIN. [Concomitant]
     Active Substance: ASPIRIN
  8. BETAXOLOL TABLETS USP 10 MG [Suspect]
     Active Substance: BETAXOLOL HYDROCHLORIDE
     Indication: TACHYCARDIA

REACTIONS (3)
  - Insomnia [Not Recovered/Not Resolved]
  - Headache [Recovering/Resolving]
  - Eye pain [Recovering/Resolving]

NARRATIVE: CASE EVENT DATE: 20150205
